FAERS Safety Report 4993362-8 (Version None)
Quarter: 2006Q2

REPORT INFORMATION
  Report Type: 
  Country: None (occurrence: None)
  Receive Date: 20060505
  Receipt Date: 20060424
  Transmission Date: 20061013
  Serious: Yes (Other)
  Sender: FDA-Public Use
  Company Number: FR-AVENTIS-200612382EU

PATIENT
  Age: 85 Year
  Sex: Male
  Weight: 60 kg

DRUGS (3)
  1. CODE UNBROKEN [Suspect]
     Indication: HYPERTENSION
     Route: 048
     Dates: start: 20051104, end: 20060127
  2. CODE UNBROKEN [Suspect]
     Route: 048
     Dates: start: 20051129, end: 20060126
  3. ASPIRIN [Concomitant]
     Dates: start: 20051031, end: 20060127

REACTIONS (1)
  - HYPERKALAEMIA [None]
